FAERS Safety Report 12188658 (Version 1)
Quarter: 2016Q1

REPORT INFORMATION
  Report Type: Spontaneous
  Country: ZA (occurrence: ZA)
  Receive Date: 20160317
  Receipt Date: 20160317
  Transmission Date: 20160526
  Serious: Yes (Hospitalization)
  Sender: FDA-Public Use
  Company Number: ZA-SA-2016SA052283

PATIENT
  Sex: Female

DRUGS (1)
  1. CLEXANE [Suspect]
     Active Substance: ENOXAPARIN SODIUM
     Indication: THROMBOSIS PROPHYLAXIS
     Dosage: STOPPED DATE MENTIONED AS 17-MAY-2016
     Route: 058
     Dates: start: 20160301

REACTIONS (4)
  - Exposure during pregnancy [Unknown]
  - Shortened cervix [Unknown]
  - Amniorrhoea [Unknown]
  - Cervical incompetence [Unknown]
